FAERS Safety Report 12474446 (Version 1)
Quarter: 2016Q2

REPORT INFORMATION
  Report Type: Spontaneous
  Country: AE (occurrence: AE)
  Receive Date: 20160617
  Receipt Date: 20160617
  Transmission Date: 20160815
  Serious: Yes (Other)
  Sender: FDA-Public Use
  Company Number: AE-ROCHE-1775911

PATIENT
  Sex: Male

DRUGS (1)
  1. CELLCEPT [Suspect]
     Active Substance: MYCOPHENOLATE MOFETIL\MYCOPHENOLATE MOFETIL HYDROCHLORIDE
     Indication: PRODUCT USED FOR UNKNOWN INDICATION
     Dosage: 50 PILLS
     Route: 065

REACTIONS (10)
  - Choking [Unknown]
  - Pain in extremity [Unknown]
  - Overdose [Unknown]
  - Haemoptysis [Unknown]
  - Faeces discoloured [Unknown]
  - Muscle spasms [Unknown]
  - Seizure [Unknown]
  - Dyspnoea [Unknown]
  - Haematemesis [Unknown]
  - Laziness [Unknown]
